FAERS Safety Report 8245928-X (Version None)
Quarter: 2012Q1

REPORT INFORMATION
  Report Type: 
  Country: None (occurrence: None)
  Receive Date: 20120330
  Receipt Date: 20120328
  Transmission Date: 20120608
  Serious: No
  Sender: FDA-Public Use
  Company Number: US-PFIZER INC-2012036392

PATIENT
  Sex: Female
  Weight: 72.5 kg

DRUGS (8)
  1. ADVIL PM [Suspect]
     Dosage: UNK
     Dates: start: 20120201, end: 20120201
  2. TEMAZEPAM [Suspect]
     Indication: INSOMNIA
     Dosage: 30 MG, DAILY
     Dates: end: 20111124
  3. HYDROCHLOROTHIAZIDE [Concomitant]
     Dosage: 25 MG, DAILY
  4. POTASSIUM [Concomitant]
     Dosage: UNK
  5. AMLODIPINE [Concomitant]
     Indication: HYPERTENSION
     Dosage: 5 MG, DAILY
  6. ICAPS [Concomitant]
     Indication: PROPHYLAXIS
     Dosage: UNK
  7. LISINOPRIL [Concomitant]
     Indication: HYPERTENSION
     Dosage: 20 MG, DAILY
  8. ADVIL PM [Suspect]
     Indication: INSOMNIA
     Dosage: UNK
     Dates: start: 20120201, end: 20120201

REACTIONS (2)
  - DRUG INEFFECTIVE [None]
  - OVERDOSE [None]
